FAERS Safety Report 6347498-X (Version None)
Quarter: 2009Q3

REPORT INFORMATION
  Report Type: 
  Country: None (occurrence: None)
  Receive Date: 20090910
  Receipt Date: 20090903
  Transmission Date: 20100115
  Serious: Yes (Hospitalization)
  Sender: FDA-Public Use
  Company Number: US-ELI_LILLY_AND_COMPANY-US200909000943

PATIENT
  Sex: Female

DRUGS (1)
  1. HUMALOG MIX 75/25 [Suspect]
     Dates: start: 20050101

REACTIONS (7)
  - ABASIA [None]
  - CARDIAC OPERATION [None]
  - CARDIAC PACEMAKER INSERTION [None]
  - IMPAIRED HEALING [None]
  - IMPLANTABLE DEFIBRILLATOR INSERTION [None]
  - LIMB INJURY [None]
  - LOCALISED INFECTION [None]
